FAERS Safety Report 10052338 (Version 1)
Quarter: 2014Q2

REPORT INFORMATION
  Report Type: Spontaneous
  Country: US (occurrence: None)
  Receive Date: 20140401
  Receipt Date: 20140401
  Transmission Date: 20141212
  Serious: Yes (Other)
  Sender: FDA-Public Use
  Company Number: None

PATIENT
  Age: 40 Year
  Sex: Female
  Weight: 68.04 kg

DRUGS (1)
  1. SUBOXONE [Suspect]
     Indication: BACK PAIN
     Dosage: 2 A DAY TWICE DAILY TAKEN UNDER THE TONGUE

REACTIONS (3)
  - Ulcer [None]
  - Blister [None]
  - Pain [None]
